FAERS Safety Report 6651695-3 (Version None)
Quarter: 2010Q1

REPORT INFORMATION
  Report Type: 
  Country: None (occurrence: None)
  Receive Date: 20100325
  Receipt Date: 20100316
  Transmission Date: 20100710
  Serious: Yes (Hospitalization, Other)
  Sender: FDA-Public Use
  Company Number: US-BAYER-200937459NA

PATIENT
  Age: 72 Year
  Sex: Female

DRUGS (8)
  1. NEXAVAR [Suspect]
     Indication: HEPATIC NEOPLASM MALIGNANT
     Dosage: TOTAL DAILY DOSE: 200 MG  UNIT DOSE: 200 MG
     Route: 048
     Dates: start: 20100213
  2. NEXAVAR [Suspect]
     Dosage: TOTAL DAILY DOSE: 200 MG  UNIT DOSE: 200 MG
     Route: 048
     Dates: start: 20091127, end: 20091204
  3. NEXAVAR [Suspect]
     Dosage: TOTAL DAILY DOSE: 400 MG  UNIT DOSE: 200 MG
     Route: 048
     Dates: start: 20091014, end: 20091028
  4. CARDIZEM CD [Concomitant]
  5. HYDROCHLOROTHIAZIDE [Concomitant]
  6. SPIRONOLACTONE [Concomitant]
  7. MILK THISTLE [Concomitant]
  8. ESSENTIAL ENZYMES [Concomitant]

REACTIONS (13)
  - ALOPECIA [None]
  - AMNESIA [None]
  - BLISTER [None]
  - CRYING [None]
  - DEPRESSED MOOD [None]
  - HAEMATOCHEZIA [None]
  - HYPERAESTHESIA [None]
  - NEPHROLITHIASIS [None]
  - PAIN IN EXTREMITY [None]
  - PAIN OF SKIN [None]
  - PALMAR-PLANTAR ERYTHRODYSAESTHESIA SYNDROME [None]
  - RASH ERYTHEMATOUS [None]
  - VAGINAL HAEMORRHAGE [None]
